FAERS Safety Report 6315005-3 (Version None)
Quarter: 2009Q3

REPORT INFORMATION
  Report Type: 
  Country: None (occurrence: None)
  Receive Date: 20090819
  Receipt Date: 20090807
  Transmission Date: 20100115
  Serious: Yes (Hospitalization, Other)
  Sender: FDA-Public Use
  Company Number: US-ELI_LILLY_AND_COMPANY-US200908001818

PATIENT
  Age: 60 Year
  Sex: Male

DRUGS (15)
  1. CYMBALTA [Suspect]
     Indication: DEPRESSION
     Dosage: 30 MG, DAILY (1/D)
  2. POTASSIUM CHLORIDE [Concomitant]
  3. LASIX [Concomitant]
  4. ROBINUL [Concomitant]
  5. IRON [Concomitant]
  6. ARICEPT [Concomitant]
  7. TRAZODONE HCL [Concomitant]
  8. NEURONTIN [Concomitant]
  9. DURAGESIC-100 [Concomitant]
  10. SEROQUEL [Concomitant]
  11. ZANAFLEX [Concomitant]
  12. ASCORBIC ACID [Concomitant]
  13. MIRALAX [Concomitant]
  14. ABILIFY [Concomitant]
  15. CLARITIN [Concomitant]

REACTIONS (2)
  - GASTROINTESTINAL TUBE INSERTION [None]
  - PNEUMONIA [None]
